FAERS Safety Report 9207368 (Version 1)
Quarter: 2013Q2

REPORT INFORMATION
  Report Type: Report from Study
  Country: CA (occurrence: CA)
  Receive Date: 20130403
  Receipt Date: 20130403
  Transmission Date: 20140414
  Serious: Yes (Other)
  Sender: FDA-Public Use
  Company Number: CA-ROCHE-1123912

PATIENT
  Age: 59 Year
  Sex: Male
  Weight: 65.8 kg

DRUGS (5)
  1. ACTEMRA [Suspect]
     Indication: RHEUMATOID ARTHRITIS
     Route: 042
     Dates: start: 20110712
  2. PREDNISONE [Concomitant]
  3. SYNTHROID [Concomitant]
  4. PANTOLOC [Concomitant]
  5. FOLIC ACID [Concomitant]

REACTIONS (5)
  - Aphthous stomatitis [Recovering/Resolving]
  - Fatigue [Recovering/Resolving]
  - Rheumatoid arthritis [Not Recovered/Not Resolved]
  - Dizziness [Unknown]
  - Inguinal hernia repair [Unknown]
